FAERS Safety Report 20939169 (Version 1)
Quarter: 2022Q2

REPORT INFORMATION
  Report Type: Spontaneous
  Country: CN (occurrence: CN)
  Receive Date: 20220609
  Receipt Date: 20220609
  Transmission Date: 20220721
  Serious: Yes (Other)
  Sender: FDA-Public Use
  Company Number: CN-PFIZER INC-202200810273

PATIENT
  Age: 40 Year
  Sex: Male
  Weight: 60 kg

DRUGS (2)
  1. SOLU-MEDROL [Suspect]
     Active Substance: METHYLPREDNISOLONE SODIUM SUCCINATE
     Indication: Intracranial infection
     Dosage: 80 MG, 1X/DAY
     Route: 041
     Dates: start: 20220513, end: 20220518
  2. SODIUM CHLORIDE [Concomitant]
     Active Substance: SODIUM CHLORIDE
     Indication: Vehicle solution use
     Dosage: 100 ML, 1X/DAY
     Route: 041
     Dates: start: 20220513, end: 20220518

REACTIONS (2)
  - Transaminases increased [Recovered/Resolved]
  - Condition aggravated [Recovered/Resolved]

NARRATIVE: CASE EVENT DATE: 20220518
